FAERS Safety Report 10600821 (Version 1)
Quarter: 2014Q4

REPORT INFORMATION
  Report Type: Spontaneous
  Country: US (occurrence: None)
  Receive Date: 20141121
  Receipt Date: 20141121
  Transmission Date: 20150529
  Serious: No
  Sender: FDA-Public Use
  Company Number: None

PATIENT
  Age: 16 Year
  Sex: Male
  Weight: 69.9 kg

DRUGS (1)
  1. SCOPOLAMINE 1.5 MG [Suspect]
     Active Substance: SCOPOLAMINE
     Indication: HYPERHIDROSIS
     Dosage: 1.5 MG ?Q 72 HOURS?TRANSDERMAL
     Route: 062
     Dates: start: 20141104, end: 20141111

REACTIONS (1)
  - Hallucinations, mixed [None]

NARRATIVE: CASE EVENT DATE: 20141111
